FAERS Safety Report 5266880-5 (Version None)
Quarter: 2007Q1

REPORT INFORMATION
  Report Type: 
  Country: None (occurrence: None)
  Receive Date: 20061213
  Receipt Date: 20030228
  Transmission Date: 20070707
  Serious: Yes (Hospitalization)
  Sender: FDA-Public Use
  Company Number: 2003UW02791

PATIENT
  Sex: Female

DRUGS (6)
  1. NOLVADEX [Suspect]
     Dates: start: 20000101
  2. PROCARDIA [Concomitant]
  3. TRIAMTERENE [Concomitant]
  4. VIOXX [Concomitant]
  5. SINEMET [Concomitant]
  6. ZOLOFT [Concomitant]

REACTIONS (1)
  - PULMONARY EMBOLISM [None]
